FAERS Safety Report 7433731-X (Version None)
Quarter: 2011Q2

REPORT INFORMATION
  Report Type: 
  Country: None (occurrence: None)
  Receive Date: 20110424
  Receipt Date: 20110419
  Transmission Date: 20111010
  Serious: No
  Sender: FDA-Public Use
  Company Number: US-B.I. PHARMACEUTICALS,INC./RIDGEFIELD-2011-BP-01235BP

PATIENT
  Sex: Female
  Weight: 70.31 kg

DRUGS (7)
  1. PRADAXA [Suspect]
     Indication: ATRIAL FIBRILLATION
     Dosage: 300 MG
     Route: 048
     Dates: start: 20110101
  2. LOSARTAN POTASSIUM [Concomitant]
     Indication: HYPERTENSION
  3. METOPROLOL [Concomitant]
     Indication: HYPERTENSION
  4. PROPYLTHIOURACIL [Concomitant]
     Indication: THYROID DISORDER
  5. CALCIUM [Concomitant]
     Indication: PROPHYLAXIS
  6. VITAMINS [Concomitant]
     Indication: PROPHYLAXIS
  7. XALATAN [Concomitant]
     Indication: GLAUCOMA

REACTIONS (2)
  - DYSPEPSIA [None]
  - WEIGHT INCREASED [None]
